FAERS Safety Report 13721667 (Version 1)
Quarter: 2017Q3

REPORT INFORMATION
  Report Type: Spontaneous
  Country: IT (occurrence: IT)
  Receive Date: 20170706
  Receipt Date: 20170706
  Transmission Date: 20171127
  Serious: Yes (Hospitalization)
  Sender: FDA-Public Use
  Company Number: IT-ASTRAZENECA-2017SE67334

PATIENT
  Sex: Male

DRUGS (3)
  1. CASODEX [Suspect]
     Active Substance: BICALUTAMIDE
     Indication: ADENOCARCINOMA
     Dosage: 150 MG
     Route: 048
  2. ALLOPURINOL. [Concomitant]
     Active Substance: ALLOPURINOL
     Indication: GOUT
  3. CASODEX [Suspect]
     Active Substance: BICALUTAMIDE
     Indication: ADENOCARCINOMA
     Dosage: 150 MG EVERY THREE MONTHS
     Route: 048

REACTIONS (4)
  - Blood iron decreased [Unknown]
  - Haemoglobin decreased [Recovered/Resolved]
  - Red blood cell count decreased [Recovered/Resolved]
  - Anaemia [Unknown]
